FAERS Safety Report 9246658 (Version 1)
Quarter: 2013Q2

REPORT INFORMATION
  Report Type: Spontaneous
  Country: FR (occurrence: FR)
  Receive Date: 20130422
  Receipt Date: 20130422
  Transmission Date: 20140414
  Serious: Yes (Disabling)
  Sender: FDA-Public Use
  Company Number: FR-SANOFI-AVENTIS-2013SA020536

PATIENT
  Age: 83 Year
  Sex: Male

DRUGS (4)
  1. RIFINAH [Suspect]
     Indication: PULMONARY TUBERCULOSIS
     Dosage: DOSE:2 UNIT(S)
     Route: 048
     Dates: start: 201210
  2. RAMIPRIL [Concomitant]
  3. CARVEDILOL [Concomitant]
  4. METFORMIN [Concomitant]

REACTIONS (3)
  - Visual acuity reduced [Not Recovered/Not Resolved]
  - Diplopia [Not Recovered/Not Resolved]
  - Age-related macular degeneration [Not Recovered/Not Resolved]
